FAERS Safety Report 6215818-2 (Version None)
Quarter: 2009Q2

REPORT INFORMATION
  Report Type: 
  Country: None (occurrence: None)
  Receive Date: 20090605
  Receipt Date: 20090527
  Transmission Date: 20091009
  Serious: Yes (Hospitalization)
  Sender: FDA-Public Use
  Company Number: US-AMGEN-KDL341474

PATIENT
  Sex: Female
  Weight: 49.9 kg

DRUGS (15)
  1. PROCRIT [Suspect]
     Indication: RENAL FAILURE CHRONIC
     Route: 058
     Dates: start: 20080818, end: 20090122
  2. ARANESP [Suspect]
     Indication: RENAL FAILURE CHRONIC
     Dates: end: 20080801
  3. SYNTHROID [Concomitant]
  4. NEXIUM [Concomitant]
  5. UNSPECIFIED MEDICATION [Concomitant]
  6. DETROL [Concomitant]
  7. FOSAMAX [Concomitant]
  8. VENOFER [Concomitant]
     Route: 042
     Dates: start: 20080915, end: 20090122
  9. ROCEPHIN [Concomitant]
  10. PEPCID [Concomitant]
  11. FEOSOL [Concomitant]
  12. SODIUM BICARBONATE [Concomitant]
  13. FLOMAX [Concomitant]
  14. ASPIRIN [Concomitant]
  15. CHONDROITIN SULFATE [Concomitant]

REACTIONS (7)
  - COMA [None]
  - CONVULSION [None]
  - HYPERTENSION [None]
  - OEDEMA PERIPHERAL [None]
  - POLLAKIURIA [None]
  - SYNCOPE [None]
  - URINARY INCONTINENCE [None]
